FAERS Safety Report 7148110-2 (Version None)
Quarter: 2010Q4

REPORT INFORMATION
  Report Type: 
  Country: None (occurrence: None)
  Receive Date: 20101209
  Receipt Date: 20101202
  Transmission Date: 20110411
  Serious: No
  Sender: FDA-Public Use
  Company Number: US-PFIZER INC-2010036418

PATIENT
  Sex: Female
  Weight: 113.38 kg

DRUGS (4)
  1. NEURONTIN [Suspect]
     Indication: NEUROPATHY PERIPHERAL
     Dosage: UNK
     Route: 048
  2. PREDNISONE [Suspect]
     Indication: LUNG DISORDER
     Dosage: UNK
     Dates: start: 20010101, end: 20010101
  3. CALAN - SLOW RELEASE [Concomitant]
     Indication: HYPERTENSION
     Dosage: 240 MG, 1X/DAY
     Route: 048
     Dates: start: 19850101
  4. XANAX [Concomitant]
     Indication: PANIC ATTACK
     Dosage: 0.5 MG, UNK
     Route: 048

REACTIONS (2)
  - DIZZINESS [None]
  - INSOMNIA [None]
